FAERS Safety Report 4858673-5 (Version None)
Quarter: 2005Q4

REPORT INFORMATION
  Report Type: 
  Country: None (occurrence: None)
  Receive Date: 20051219
  Receipt Date: 20051017
  Transmission Date: 20060501
  Serious: No
  Sender: FDA-Public Use
  Company Number: US-GLAXOSMITHKLINE-A0578427A

PATIENT

DRUGS (2)
  1. NICODERM CQ [Suspect]
     Dates: start: 20050929, end: 20050930
  2. NICODERM CQ [Suspect]
     Dates: start: 20050930

REACTIONS (4)
  - GINGIVAL PAIN [None]
  - LIP PAIN [None]
  - PSYCHOMOTOR HYPERACTIVITY [None]
  - STOMATITIS [None]
